FAERS Safety Report 20836584 (Version 13)
Quarter: 2025Q2

REPORT INFORMATION
  Report Type: Spontaneous
  Country: ES (occurrence: ES)
  Receive Date: 20220517
  Receipt Date: 20250530
  Transmission Date: 20250716
  Serious: Yes (Hospitalization, Other)
  Sender: AUROBINDO
  Company Number: ES-AUROBINDO-AUR-APL-2022-016440

PATIENT
  Age: 75 Year
  Sex: Male

DRUGS (29)
  1. CLOPIDOGREL [Interacting]
     Active Substance: CLOPIDOGREL BISULFATE
     Indication: Cerebrovascular accident
     Dosage: 75 MILLIGRAM, ONCE A DAY, 2 YEARS AGO
     Route: 048
  2. CLOPIDOGREL [Interacting]
     Active Substance: CLOPIDOGREL BISULFATE
     Indication: Cardiovascular disorder
     Dosage: ONCE A DAY
     Route: 065
  3. CLOPIDOGREL [Interacting]
     Active Substance: CLOPIDOGREL BISULFATE
     Indication: Diabetes mellitus
  4. DONEPEZIL HYDROCHLORIDE [Suspect]
     Active Substance: DONEPEZIL HYDROCHLORIDE
     Indication: Dementia
     Dosage: 10 MILLIGRAM, ONCE A DAY (FREQUENCY OF ADMINISTRATION 1/0/0, FOR 1 YEAR)
     Route: 048
  5. METFORMIN [Interacting]
     Active Substance: METFORMIN HYDROCHLORIDE
     Indication: Diabetes mellitus
     Dosage: 1 GRAM, TWO TIMES A DAY
     Route: 048
  6. METFORMIN [Interacting]
     Active Substance: METFORMIN HYDROCHLORIDE
     Indication: Cerebrovascular accident
     Route: 065
  7. METFORMIN [Interacting]
     Active Substance: METFORMIN HYDROCHLORIDE
     Route: 065
     Dates: start: 2018
  8. METFORMIN [Interacting]
     Active Substance: METFORMIN HYDROCHLORIDE
     Dosage: 1700 MILLIGRAM, ONCE A DAY (850 MILLIGRAM, BID (1/0/1)
     Route: 065
     Dates: start: 2018
  9. PANTOPRAZOLE SODIUM [Suspect]
     Active Substance: PANTOPRAZOLE SODIUM
     Indication: Gastrointestinal disorder prophylaxis
     Dosage: 40 MILLIGRAM, ONCE A DAY (40 MILLIGRAM (FREQUENCY OF ADMINISTRATION 1/0/0)
     Route: 048
  10. PANTOPRAZOLE SODIUM [Suspect]
     Active Substance: PANTOPRAZOLE SODIUM
     Indication: Prophylaxis against gastrointestinal ulcer
     Route: 065
     Dates: start: 202005
  11. PANTOPRAZOLE SODIUM [Suspect]
     Active Substance: PANTOPRAZOLE SODIUM
     Indication: Abdominal pain upper
  12. ACETAMINOPHEN [Suspect]
     Active Substance: ACETAMINOPHEN
     Indication: Pain
     Route: 048
  13. REPAGLINIDE [Interacting]
     Active Substance: REPAGLINIDE
     Indication: Diabetes mellitus
     Dosage: 2 MILLIGRAM, 5 TIMES A DAY (2/2/1)
     Route: 065
  14. REPAGLINIDE [Interacting]
     Active Substance: REPAGLINIDE
     Dosage: 2 MILLIGRAM, 3 TIMES A DAY
     Route: 048
  15. REPAGLINIDE [Interacting]
     Active Substance: REPAGLINIDE
     Route: 048
  16. VILDAGLIPTIN [Interacting]
     Active Substance: VILDAGLIPTIN
     Indication: Diabetes mellitus
     Dosage: 50 MILLIGRAM, TWO TIMES A DAY
     Route: 048
  17. REPAGLINIDE [Suspect]
     Active Substance: REPAGLINIDE
     Indication: Product used for unknown indication
     Route: 065
  18. PREDNISONE [Interacting]
     Active Substance: PREDNISONE
     Indication: Inflammatory bowel disease
     Route: 048
  19. PREDNISONE [Interacting]
     Active Substance: PREDNISONE
     Indication: Gastrointestinal inflammation
     Route: 065
     Dates: start: 202005
  20. VIDARABINE [Suspect]
     Active Substance: VIDARABINE
     Indication: Diabetes mellitus
     Dosage: 50 MILLIGRAM, TWO TIMES A DAY
     Route: 065
  21. CALCIUM\CHOLECALCIFEROL [Concomitant]
     Active Substance: CALCIUM\CHOLECALCIFEROL
     Indication: Adrenocortical steroid therapy
     Dosage: 1 DOSAGE FORM, ONCE A DAY (1000MG/800UI, ONCE A DAY FOR 3  MONTHS)
     Route: 048
  22. CALCIUM\CHOLECALCIFEROL [Concomitant]
     Active Substance: CALCIUM\CHOLECALCIFEROL
     Indication: Steroid therapy
  23. CALCIUM\CHOLECALCIFEROL [Concomitant]
     Active Substance: CALCIUM\CHOLECALCIFEROL
     Indication: Osteoporosis prophylaxis
  24. Donepezilo actavis [Concomitant]
     Indication: Dementia
     Route: 065
  25. FOLIC ACID [Concomitant]
     Active Substance: FOLIC ACID
     Indication: Folate deficiency
     Dosage: 5 MILLIGRAM, ONCE A DAY (FREQUENCY OF ADMINISTRATION: 0/1/0 )
     Route: 048
  26. FOLIC ACID [Concomitant]
     Active Substance: FOLIC ACID
     Indication: Vitamin B complex deficiency
  27. FOLIC ACID [Concomitant]
     Active Substance: FOLIC ACID
     Indication: Vitamin B6 deficiency
  28. ACETAMINOPHEN [Concomitant]
     Active Substance: ACETAMINOPHEN
     Indication: Pain
     Route: 048
  29. VITAMIN D [Concomitant]
     Active Substance: VITAMIN D NOS
     Indication: Osteoporosis prophylaxis
     Dosage: ONCE A DAY (1000 MG/800 UI, FREQUENCY OF ADMINISTRATION 1/0/0, FOR 3  MONTHS)
     Route: 048

REACTIONS (12)
  - Abdominal pain [Recovering/Resolving]
  - Anal incontinence [Recovering/Resolving]
  - Drug interaction [Recovering/Resolving]
  - Flatulence [Recovering/Resolving]
  - Diarrhoea [Recovering/Resolving]
  - Blood glucose increased [Recovering/Resolving]
  - Hyperglycaemia [Recovering/Resolving]
  - Glycosylated haemoglobin increased [Recovering/Resolving]
  - Blood triglycerides increased [Recovering/Resolving]
  - Crohn^s disease [Unknown]
  - Product prescribing issue [Recovering/Resolving]
  - Contraindication to medical treatment [Recovering/Resolving]
